FAERS Safety Report 5011524-0 (Version None)
Quarter: 2006Q2

REPORT INFORMATION
  Report Type: 
  Country: None (occurrence: None)
  Receive Date: 20060524
  Receipt Date: 20060515
  Transmission Date: 20061013
  Serious: No
  Sender: FDA-Public Use
  Company Number: TPA2006A00832

PATIENT
  Age: 73 Year
  Sex: Female
  Weight: 90.7194 kg

DRUGS (2)
  1. ACTOS [Suspect]
     Indication: DIABETES MELLITUS NON-INSULIN-DEPENDENT
     Dosage: 45 M G, 1 IN 1 D, PER ORAL
     Route: 048
     Dates: start: 20060502
  2. HUMALOG MIX 75/25 [Concomitant]

REACTIONS (1)
  - POOR QUALITY DRUG ADMINISTERED [None]
